FAERS Safety Report 4893386-5 (Version None)
Quarter: 2006Q1

REPORT INFORMATION
  Report Type: 
  Country: None (occurrence: None)
  Receive Date: 20060119
  Receipt Date: 20060109
  Transmission Date: 20060701
  Serious: Yes (Other)
  Sender: FDA-Public Use
  Company Number: 200410505BBE

PATIENT
  Sex: Male

DRUGS (33)
  1. HYPRHO-D [Suspect]
     Indication: PREGNANCY
     Dates: start: 19941216
  2. HYPRHO-D [Suspect]
     Indication: PREGNANCY
     Dates: start: 19950303
  3. HYPRHO-D [Suspect]
  4. INJECTABLE GLOBULIN                  (IMMUNOGLOBULIN HUMAN NORMAL) [Suspect]
  5. INJECTABLE GLOBULIN  (IMMUNOGLOBULIN HUMAN NORMAL) [Suspect]
  6. INJECTABLE GLOBULIN                      (IMMUNOGLOBULIN HUMAN NORMAL) [Suspect]
  7. INJECTABLE GLOBULIN                    (IMMUNOGLOBULIN HUMAN NORMAL) [Suspect]
  8. INJECTABLE GLOBULIN         (IMMUNOGLOBULIN HUMAN NORMAL) [Suspect]
  9. INJECTABLE GLOBULIN                           (IMMUNOGLOBULIN HUMAN NO [Suspect]
  10. IMMUNE GLOBULIN (HUMAN) [Suspect]
  11. INJECTABLE GLOBULIN                  (IMMUNOGLOBULIN HUMAN NORMAL) [Suspect]
  12. INJECTABLE GLOBULIN                       (IMMUNOGLOBULIN HUMAN NORMAL [Suspect]
  13. PRELONE [Concomitant]
  14. HEPATITIS B VACCINE [Concomitant]
  15. RACEMIC EPINEPHRINE [Concomitant]
  16. ROCEPHIN [Concomitant]
  17. AMPICILLIN SODIUM [Concomitant]
  18. ZITHROMAX [Concomitant]
  19. RITALIN [Concomitant]
  20. DECADRON [Concomitant]
  21. CORTICOSTEROIDS [Concomitant]
  22. SOLU-MEDROL [Concomitant]
  23. ALBUTEROL [Concomitant]
  24. STRATTERA [Concomitant]
  25. CONCERTA [Concomitant]
  26. AQUAMEPHYTON [Concomitant]
  27. ERYTHROMYCIN [Concomitant]
  28. DPT [Concomitant]
  29. OPV ^LEDERLE^ [Concomitant]
  30. HIB-IMUNE [Concomitant]
  31. M-M-R II [Concomitant]
  32. IPV [Concomitant]
  33. VARICELLA [Concomitant]

REACTIONS (22)
  - ADENOIDAL HYPERTROPHY [None]
  - ATTENTION DEFICIT/HYPERACTIVITY DISORDER [None]
  - AUTISM [None]
  - BRONCHIOLITIS [None]
  - BRONCHITIS ACUTE [None]
  - CONGENITAL ANOMALY [None]
  - CONGENITAL ORAL MALFORMATION [None]
  - CROUP INFECTIOUS [None]
  - DEVELOPMENTAL DELAY [None]
  - DRUG EXPOSURE DURING PREGNANCY [None]
  - DRUG INEFFECTIVE [None]
  - EXPRESSIVE LANGUAGE DISORDER [None]
  - HEARING IMPAIRED [None]
  - INTERSTITIAL LUNG DISEASE [None]
  - LARYNGEAL STENOSIS [None]
  - MECONIUM IN AMNIOTIC FLUID [None]
  - METAL POISONING [None]
  - NEUROTOXICITY [None]
  - OTITIS MEDIA CHRONIC [None]
  - RESPIRATORY TRACT INFECTION [None]
  - STRIDOR [None]
  - VIRAL PHARYNGITIS [None]
